FAERS Safety Report 6905015-7 (Version None)
Quarter: 2010Q3

REPORT INFORMATION
  Report Type: 
  Country: None (occurrence: None)
  Receive Date: 20100804
  Receipt Date: 20090827
  Transmission Date: 20110219
  Serious: Yes (Other)
  Sender: FDA-Public Use
  Company Number: US-PFIZER INC-2009228520

PATIENT
  Sex: Male
  Weight: 92.517 kg

DRUGS (2)
  1. LYRICA [Suspect]
     Indication: NEUROPATHY PERIPHERAL
     Dosage: 100 MG, 2X/DAY
     Dates: start: 20090102, end: 20090501
  2. GABAPENTIN [Suspect]
     Dosage: UNK
     Dates: start: 20090101

REACTIONS (10)
  - DERMATITIS CONTACT [None]
  - FATIGUE [None]
  - FOLLICULITIS [None]
  - INSOMNIA [None]
  - MALAISE [None]
  - PAIN [None]
  - PARAESTHESIA [None]
  - PRURITUS [None]
  - SKIN DISORDER [None]
  - URTICARIA [None]
